FAERS Safety Report 4952017-6 (Version None)
Quarter: 2006Q1

REPORT INFORMATION
  Report Type: 
  Country: None (occurrence: None)
  Receive Date: 20060322
  Receipt Date: 20060322
  Transmission Date: 20060701
  Serious: Yes (Other)
  Sender: FDA-Public Use
  Company Number: None

PATIENT
  Sex: Female

DRUGS (1)
  1. DEXEDRINE [Suspect]
     Indication: ATTENTION DEFICIT/HYPERACTIVITY DISORDER
     Dosage: 15 MG 3 PO BID
     Route: 048
     Dates: start: 20020401

REACTIONS (3)
  - AGITATION [None]
  - DRUG INEFFECTIVE [None]
  - FATIGUE [None]
